FAERS Safety Report 6584771-4 (Version None)
Quarter: 2010Q1

REPORT INFORMATION
  Report Type: 
  Country: None (occurrence: None)
  Receive Date: 20100204
  Receipt Date: 20100125
  Transmission Date: 20100710
  Serious: Yes (Hospitalization, Other)
  Sender: FDA-Public Use
  Company Number: 002362

PATIENT
  Sex: Male
  Weight: 98 kg

DRUGS (11)
  1. ROTIGOTINE (ROTIGOTINE) [Suspect]
     Indication: PARKINSON'S DISEASE
     Dosage: 2 MG QD, 4 MG QD, 6  MG QD
     Dates: start: 20061115, end: 20061121
  2. ROTIGOTINE (ROTIGOTINE) [Suspect]
     Indication: PARKINSON'S DISEASE
     Dosage: 2 MG QD, 4 MG QD, 6  MG QD
     Dates: start: 20061122, end: 20080226
  3. ROTIGOTINE (ROTIGOTINE) [Suspect]
     Indication: PARKINSON'S DISEASE
     Dosage: 2 MG QD, 4 MG QD, 6  MG QD
     Dates: start: 20080227
  4. RASAGILINE (RASAGLINE) [Suspect]
     Indication: PARKINSON'S DISEASE
     Dosage: 1 MG QD
     Dates: start: 20060404
  5. LEVODOPA/CARBIDOPA (NOT SPECIFIED) [Suspect]
     Indication: PARKINSON'S DISEASE
     Dosage: 50/12.5 MG, 100/25 MG
     Dates: start: 20090310, end: 20090730
  6. LEVODOPA/CARBIDOPA (NOT SPECIFIED) [Suspect]
     Indication: PARKINSON'S DISEASE
     Dosage: 50/12.5 MG, 100/25 MG
     Dates: start: 20090731
  7. LEVITRA [Concomitant]
  8. LISINOPRIL [Concomitant]
  9. METOPROLOL TARTRATE [Concomitant]
  10. LEVOCOMP [Concomitant]
  11. AMANTADINE HCL [Concomitant]

REACTIONS (3)
  - CONDITION AGGRAVATED [None]
  - SLEEP ATTACKS [None]
  - VARICOSE VEIN [None]
